FAERS Safety Report 23141988 (Version 2)
Quarter: 2023Q4

REPORT INFORMATION
  Report Type: Spontaneous
  Country: US (occurrence: None)
  Receive Date: 20231103
  Receipt Date: 20231206
  Transmission Date: 20240109
  Serious: No
  Sender: FDA-Public Use
  Company Number: 2023A245600

PATIENT
  Age: 7475 Day
  Sex: Female

DRUGS (2)
  1. FASENRA [Suspect]
     Active Substance: BENRALIZUMAB
     Route: 058
     Dates: start: 20230401
  2. FASENRA [Concomitant]
     Active Substance: BENRALIZUMAB
     Route: 058

REACTIONS (4)
  - Exposure during pregnancy [Unknown]
  - Hyperemesis gravidarum [Unknown]
  - Decreased activity [Unknown]
  - Product dose omission issue [Unknown]

NARRATIVE: CASE EVENT DATE: 20231025
